FAERS Safety Report 15656010 (Version 1)
Quarter: 2018Q4

REPORT INFORMATION
  Report Type: Spontaneous
  Country: US (occurrence: US)
  Receive Date: 20181126
  Receipt Date: 20181126
  Transmission Date: 20190205
  Serious: No
  Sender: FDA-Public Use
  Company Number: US-GLAXOSMITHKLINE-US2018209098

PATIENT
  Age: 54 Year
  Sex: Male

DRUGS (2)
  1. LANSOPRAZOLE. [Suspect]
     Active Substance: LANSOPRAZOLE
     Indication: PRODUCT USED FOR UNKNOWN INDICATION
     Dosage: UNK
  2. PREVACID 24 HR [Suspect]
     Active Substance: LANSOPRAZOLE
     Indication: OESOPHAGEAL DISORDER
     Dosage: UNK
     Dates: end: 20181016

REACTIONS (3)
  - Drug ineffective [Unknown]
  - Off label use [Unknown]
  - Incorrect product administration duration [Unknown]
